FAERS Safety Report 6725989-7 (Version None)
Quarter: 2010Q2

REPORT INFORMATION
  Report Type: 
  Country: None (occurrence: None)
  Receive Date: 20100514
  Receipt Date: 20100503
  Transmission Date: 20101027
  Serious: Yes (Other)
  Sender: FDA-Public Use
  Company Number: US-ELI_LILLY_AND_COMPANY-US200907002035

PATIENT
  Sex: Male

DRUGS (6)
  1. CIALIS [Suspect]
     Indication: ERECTILE DYSFUNCTION
     Dosage: 20 MG, UNKNOWN
     Route: 065
     Dates: start: 20070101
  2. ASPIRIN [Concomitant]
     Dosage: 81 MG, DAILY (1/D)
  3. PROPECIA [Concomitant]
     Dosage: 1 MG, DAILY (1/D)
  4. PRILOSEC [Concomitant]
     Dosage: 20 MG, DAILY (1/D)
  5. LIPITOR [Concomitant]
     Dosage: 20 MG, DAILY (1/D)
  6. YOHIMBINE [Concomitant]
     Dosage: 5.4 MG, 3/D

REACTIONS (5)
  - BLINDNESS [None]
  - BLINDNESS UNILATERAL [None]
  - CARDIAC VALVE VEGETATION [None]
  - OPTIC ISCHAEMIC NEUROPATHY [None]
  - SCOTOMA [None]
